FAERS Safety Report 5261847-5 (Version None)
Quarter: 2007Q1

REPORT INFORMATION
  Report Type: 
  Country: None (occurrence: None)
  Receive Date: 20070310
  Receipt Date: 20070228
  Transmission Date: 20070707
  Serious: Yes (Hospitalization)
  Sender: FDA-Public Use
  Company Number: 2006UW25940

PATIENT
  Sex: Female
  Weight: 77.3 kg

DRUGS (12)
  1. SEROQUEL [Suspect]
     Indication: BIPOLAR DISORDER
     Route: 048
     Dates: start: 19990101
  2. SEROQUEL [Suspect]
     Indication: SCHIZOPHRENIA
     Route: 048
     Dates: start: 19990101
  3. ABILIFY [Suspect]
  4. HALDOL [Suspect]
  5. NAVANE [Suspect]
  6. RISPERDAL [Suspect]
  7. THORAZINE [Suspect]
  8. ZYPREXA [Suspect]
  9. LITHIUM CARBONATE [Suspect]
  10. PAXIL [Suspect]
  11. LEXAPRO [Suspect]
  12. COGENTIN [Suspect]

REACTIONS (5)
  - BIPOLAR DISORDER [None]
  - DEPRESSION [None]
  - DIABETES MELLITUS [None]
  - MOOD SWINGS [None]
  - SCHIZOPHRENIA [None]
